FAERS Safety Report 13239592 (Version 1)
Quarter: 2017Q1

REPORT INFORMATION
  Report Type: Spontaneous
  Country: US (occurrence: US)
  Receive Date: 20170216
  Receipt Date: 20170216
  Transmission Date: 20170428
  Serious: No
  Sender: FDA-Public Use
  Company Number: US-RELYPSA-RLY2016003378

PATIENT
  Age: 60 Year
  Sex: Male

DRUGS (5)
  1. VELTASSA [Suspect]
     Active Substance: PATIROMER
     Indication: HYPERKALAEMIA
     Dosage: 8.4 MG, QD
     Route: 048
     Dates: start: 20160922
  2. CALCITRIOL. [Concomitant]
     Active Substance: CALCITRIOL
     Dosage: UNK
  3. SODIUM BICARBONATE. [Concomitant]
     Active Substance: SODIUM BICARBONATE
  4. SODIUM CITRATE. [Concomitant]
     Active Substance: SODIUM CITRATE
  5. CITRIC ACID [Concomitant]
     Active Substance: CITRIC ACID MONOHYDRATE

REACTIONS (1)
  - Diarrhoea [Unknown]

NARRATIVE: CASE EVENT DATE: 201610
